FAERS Safety Report 25354821 (Version 2)
Quarter: 2025Q2

REPORT INFORMATION
  Report Type: Spontaneous
  Country: US (occurrence: US)
  Receive Date: 20250524
  Receipt Date: 20250529
  Transmission Date: 20250717
  Serious: No
  Sender: ABBVIE
  Company Number: US-ABBVIE-6295799

PATIENT
  Age: 70 Year
  Sex: Female

DRUGS (1)
  1. DEPAKOTE [Suspect]
     Active Substance: DIVALPROEX SODIUM
     Indication: Bipolar II disorder
     Route: 048

REACTIONS (3)
  - Product residue present [Not Recovered/Not Resolved]
  - Off label use [Unknown]
  - Product physical issue [Unknown]
